FAERS Safety Report 7785033-X (Version None)
Quarter: 2011Q3

REPORT INFORMATION
  Report Type: 
  Country: None (occurrence: None)
  Receive Date: 20110929
  Receipt Date: 20110920
  Transmission Date: 20111222
  Serious: Yes (Other)
  Sender: FDA-Public Use
  Company Number: JP-BRISTOL-MYERS SQUIBB COMPANY-15462476

PATIENT
  Age: 29 Year
  Sex: Female
  Weight: 60 kg

DRUGS (4)
  1. ABILIFY [Suspect]
     Indication: SCHIZOPHRENIA
     Route: 048
     Dates: end: 20090913
  2. ALOSENN [Concomitant]
     Dosage: GRANULES
     Dates: start: 20081120
  3. FERROUS CITRATE [Concomitant]
     Dosage: TAB
     Dates: start: 20081207
  4. MAGMITT [Concomitant]
     Dosage: FORMU: TAB
     Dates: start: 20081129, end: 20081205

REACTIONS (3)
  - PREGNANCY [None]
  - THREATENED LABOUR [None]
  - NORMAL NEWBORN [None]
